FAERS Safety Report 8178313-X (Version None)
Quarter: 2012Q1

REPORT INFORMATION
  Report Type: 
  Country: None (occurrence: None)
  Receive Date: 20120301
  Receipt Date: 20120224
  Transmission Date: 20120608
  Serious: Yes (Other)
  Sender: FDA-Public Use
  Company Number: ZA-PFIZER INC-2012050643

PATIENT
  Age: 41 Year
  Sex: Male

DRUGS (2)
  1. LYRICA [Suspect]
     Indication: HEADACHE
     Dosage: 25 MG, 3X/DAY
     Route: 048
     Dates: start: 20110228
  2. AMITRIPTYLINE HCL [Concomitant]
     Dosage: UNK
     Route: 048

REACTIONS (1)
  - AMNESIA [None]
